FAERS Safety Report 7060627-8 (Version None)
Quarter: 2010Q4

REPORT INFORMATION
  Report Type: 
  Country: None (occurrence: None)
  Receive Date: 20101025
  Receipt Date: 20101013
  Transmission Date: 20110411
  Serious: Yes (Other)
  Sender: FDA-Public Use
  Company Number: TR-ELI_LILLY_AND_COMPANY-TR201010004257

PATIENT
  Age: 46 Year
  Sex: Female

DRUGS (3)
  1. HUMALOG MIX 75/25 [Suspect]
     Indication: DIABETES MELLITUS
     Dosage: 12 U, EACH MORNING
     Route: 058
     Dates: start: 20100801
  2. HUMALOG MIX 75/25 [Suspect]
     Dosage: 8 U, EACH EVENING
     Route: 058
     Dates: start: 20100801
  3. GLIFOR [Concomitant]
     Dosage: UNK, DAILY (1/D)
     Route: 048
     Dates: start: 20050101

REACTIONS (2)
  - BLOOD GLUCOSE INCREASED [None]
  - SYNCOPE [None]
